FAERS Safety Report 5697969-4 (Version None)
Quarter: 2008Q2

REPORT INFORMATION
  Report Type: 
  Country: None (occurrence: None)
  Receive Date: 20080408
  Receipt Date: 20080404
  Transmission Date: 20081010
  Serious: Yes (Death)
  Sender: FDA-Public Use
  Company Number: DE-SANOFI-SYNTHELABO-F01200800538

PATIENT
  Sex: Male

DRUGS (6)
  1. UNKNOWN DRUG [Concomitant]
     Dosage: UNK
     Route: 065
     Dates: start: 20080306, end: 20080313
  2. STILNOX [Concomitant]
     Dosage: UNK
     Route: 065
     Dates: start: 20080313, end: 20080324
  3. DEXAMETHASONE [Concomitant]
     Dosage: UNK
     Route: 065
     Dates: start: 20080306, end: 20080313
  4. CAPECITABINE [Suspect]
     Dosage: 800 MG/M2 TWICE DAILY ON DAYS1-15
     Route: 048
     Dates: start: 20080306, end: 20080319
  5. DOCETAXEL [Suspect]
     Dosage: 35 MG/M2 ON DAYS 1 AND 8 OF A 22-DAY CYCLE
     Route: 042
     Dates: start: 20080313, end: 20080313
  6. OXALIPLATIN [Suspect]
     Indication: GASTRIC CANCER
     Dosage: 70 MG/M2 ON DAYS1 AND 8 OF A 22-DAY CYCLE
     Route: 042
     Dates: start: 20080313, end: 20080313

REACTIONS (1)
  - DEATH [None]
